FAERS Safety Report 7940978-2 (Version None)
Quarter: 2011Q4

REPORT INFORMATION
  Report Type: 
  Country: None (occurrence: None)
  Receive Date: 20111128
  Receipt Date: 20111116
  Transmission Date: 20120403
  Serious: Yes (Other)
  Sender: FDA-Public Use
  Company Number: IT-COVIDIEN/TYCO HEALTHCARE/MALLINCKRODT-T201102654

PATIENT
  Age: 12 Year
  Sex: Male

DRUGS (2)
  1. METHYLIN [Suspect]
     Indication: ATTENTION DEFICIT/HYPERACTIVITY DISORDER
     Dosage: 15 MG/DAY
  2. METHYLIN [Suspect]
     Dosage: 10 MG/DAY

REACTIONS (1)
  - PETIT MAL EPILEPSY [None]
